FAERS Safety Report 10535994 (Version 2)
Quarter: 2014Q4

REPORT INFORMATION
  Report Type: Spontaneous
  Country: US (occurrence: US)
  Receive Date: 20141022
  Receipt Date: 20141022
  Transmission Date: 20150529
  Serious: No
  Sender: FDA-Public Use
  Company Number: US-RECKITT BENCKISER PHARMACEUTICAL, INC-RB-61441-2013

PATIENT

DRUGS (1)
  1. SUBOXONE [Suspect]
     Active Substance: BUPRENORPHINE HYDROCHLORIDE\NALOXONE HYDROCHLORIDE
     Indication: SUBSTANCE USE
     Dosage: SUBOXONE FILM; DOSING DETAILS UNKNOWN; TAKEN ONCE
     Route: 060
     Dates: start: 201312, end: 201312

REACTIONS (5)
  - Vomiting [Unknown]
  - Headache [Unknown]
  - Substance abuse [Recovered/Resolved]
  - Blood carbon monoxide increased [Unknown]
  - Nausea [Unknown]

NARRATIVE: CASE EVENT DATE: 201312
